FAERS Safety Report 5178895-6 (Version None)
Quarter: 2006Q4

REPORT INFORMATION
  Report Type: 
  Country: None (occurrence: None)
  Receive Date: 20061208
  Receipt Date: 20061127
  Transmission Date: 20070319
  Serious: Yes (Other)
  Sender: FDA-Public Use
  Company Number: T200601344

PATIENT
  Sex: Male

DRUGS (1)
  1. OPTIRAY 160 [Suspect]
     Indication: COMPUTERISED TOMOGRAM THORAX
     Dosage: 80 ML, SINGLE, INTRAVENOUS
     Route: 042
     Dates: start: 20061106, end: 20061106

REACTIONS (4)
  - CHEST DISCOMFORT [None]
  - RESPIRATORY DISTRESS [None]
  - THROAT IRRITATION [None]
  - THROAT TIGHTNESS [None]
